FAERS Safety Report 17165568 (Version 2)
Quarter: 2023Q1

REPORT INFORMATION
  Report Type: Spontaneous
  Country: US (occurrence: US)
  Receive Date: 20191217
  Receipt Date: 20230221
  Transmission Date: 20230417
  Serious: No
  Sender: FDA-Public Use
  Company Number: US-JNJFOC-20191227313

PATIENT
  Sex: Male

DRUGS (2)
  1. RISPERDAL [Suspect]
     Active Substance: RISPERIDONE
     Indication: Anger
     Route: 048
     Dates: start: 20100507, end: 20100707
  2. RISPERDAL [Suspect]
     Active Substance: RISPERIDONE
     Indication: Aggression

REACTIONS (2)
  - Emotional disorder [Unknown]
  - Gynaecomastia [Not Recovered/Not Resolved]
